FAERS Safety Report 5521099-5 (Version None)
Quarter: 2007Q4

REPORT INFORMATION
  Report Type: 
  Country: None (occurrence: None)
  Receive Date: 20071119
  Receipt Date: 20071109
  Transmission Date: 20080405
  Serious: No
  Sender: FDA-Public Use
  Company Number: US-BAXTER-2007BH004967

PATIENT
  Age: 56 Year
  Sex: Female

DRUGS (1)
  1. DIANEAL [Suspect]
     Indication: RENAL FAILURE CHRONIC
     Dosage: DOSE UNIT:UNKNOWN
     Route: 033
     Dates: start: 20030823, end: 20070101

REACTIONS (3)
  - CATHETER SITE INFECTION [None]
  - FUNGAL PERITONITIS [None]
  - PERITONITIS BACTERIAL [None]
